FAERS Safety Report 8530732-5 (Version None)
Quarter: 2012Q3

REPORT INFORMATION
  Report Type: 
  Country: None (occurrence: None)
  Receive Date: 20120723
  Receipt Date: 20120716
  Transmission Date: 20120928
  Serious: Yes (Hospitalization, Other)
  Sender: FDA-Public Use
  Company Number: PHHY2012FR062015

PATIENT
  Sex: Female

DRUGS (6)
  1. LEVEMIR [Concomitant]
     Dosage: 50 UNITS IN THE MORNING AND 6 UNITS IN THE EVENING
     Route: 058
     Dates: start: 20110609, end: 20120618
  2. KETOPROFEN [Suspect]
     Indication: SCIATICA
     Dosage: 200 MG DAILY
     Dates: start: 20120203, end: 20120210
  3. LANSOPRAZOLE [Suspect]
     Dates: start: 20110924, end: 20111002
  4. XELODA [Concomitant]
     Dosage: 1650 MG, EVERY 2 DAYS
     Dates: start: 20110116, end: 20120321
  5. HUMALOG [Concomitant]
     Dates: start: 20090101
  6. VOLTAREN [Suspect]
     Indication: SCIATICA
     Dosage: 150 MG DAILY
     Route: 048
     Dates: start: 20110924, end: 20111002

REACTIONS (7)
  - ASPARTATE AMINOTRANSFERASE INCREASED [None]
  - CHOLESTASIS [None]
  - ALANINE AMINOTRANSFERASE INCREASED [None]
  - GAMMA-GLUTAMYLTRANSFERASE INCREASED [None]
  - BLOOD ALKALINE PHOSPHATASE INCREASED [None]
  - COLON CANCER [None]
  - CHOLANGITIS [None]
